FAERS Safety Report 9978115 (Version 4)
Quarter: 2014Q2

REPORT INFORMATION
  Report Type: Spontaneous
  Country: US (occurrence: US)
  Receive Date: 20140306
  Receipt Date: 20140507
  Transmission Date: 20141212
  Serious: No
  Sender: FDA-Public Use
  Company Number: US-PFIZER INC-2014063631

PATIENT
  Age: 73 Year
  Sex: Male

DRUGS (4)
  1. BOSULIF [Suspect]
     Indication: CHRONIC MYELOID LEUKAEMIA
     Dosage: 300 MG, UNK
     Dates: start: 20130127
  2. BOSULIF [Suspect]
     Dosage: 300 MG, UNK
     Dates: start: 20140121
  3. BOSULIF [Suspect]
     Dosage: 300 MG, DAILY (THREE 100 MG TABLETS DAILY)
     Route: 048
     Dates: start: 20140127
  4. BOSULIF [Suspect]
     Dosage: 200 MG, DAILY
     Route: 048
     Dates: start: 20140224, end: 20140317

REACTIONS (4)
  - Feeling abnormal [Recovered/Resolved]
  - Nasopharyngitis [Recovered/Resolved]
  - Renal disorder [Unknown]
  - Hepatotoxicity [Recovered/Resolved]
